FAERS Safety Report 20968329 (Version 5)
Quarter: 2024Q1

REPORT INFORMATION
  Report Type: Spontaneous
  Country: US (occurrence: US)
  Receive Date: 20220616
  Receipt Date: 20240111
  Transmission Date: 20240410
  Serious: Yes (Hospitalization, Other)
  Sender: FDA-Public Use
  Company Number: US-PFIZER INC-202200843119

PATIENT
  Age: 87 Year
  Sex: Female
  Weight: 72.57 kg

DRUGS (11)
  1. IBRANCE [Suspect]
     Active Substance: PALBOCICLIB
     Indication: Breast cancer
     Dosage: UNK
  2. IBRANCE [Suspect]
     Active Substance: PALBOCICLIB
     Dosage: 75MG ONE TABLET BY MOUTH EACH DAY FOR 18 DAYS, THEN TEN DAYS OFF
     Route: 048
  3. IBRANCE [Suspect]
     Active Substance: PALBOCICLIB
     Dosage: (TAKES IT FOR 18 DAYS ON AND 14 DAYS OFF BY MOUTH)AND TAKES ONE IN THE MORNING PER DAY
     Route: 048
  4. MAGNESIUM [Suspect]
     Active Substance: MAGNESIUM
     Dosage: 400 MG, 1X/DAY
     Route: 048
     Dates: start: 2022
  5. ZINC [Suspect]
     Active Substance: PYRITHIONE ZINC\ZINC\ZINC CHLORIDE
     Dosage: 50 MG, 1X/DAY
     Route: 048
     Dates: start: 2022
  6. CHOLECALCIFEROL [Concomitant]
     Active Substance: CHOLECALCIFEROL
     Dosage: UNK
  7. MINERALS\VITAMINS [Concomitant]
     Active Substance: MINERALS\VITAMINS
     Indication: Eye disorder
     Dosage: UNK
  8. FISH OIL [Concomitant]
     Active Substance: FISH OIL
     Dosage: UNK
  9. IRON [Concomitant]
     Active Substance: IRON
     Dosage: UNK
  10. METFORMIN HYDROCHLORIDE [Concomitant]
     Active Substance: METFORMIN HYDROCHLORIDE
     Indication: Diabetes mellitus
     Dosage: UNK
  11. PIOGLITAZONE [Concomitant]
     Active Substance: PIOGLITAZONE
     Dosage: 30 MG, 1X/DAY

REACTIONS (5)
  - Diverticulitis [Recovered/Resolved]
  - Eye disorder [Unknown]
  - Expired product administered [Unknown]
  - Photophobia [Unknown]
  - Dry eye [Unknown]

NARRATIVE: CASE EVENT DATE: 20220601
